FAERS Safety Report 7687214-2 (Version None)
Quarter: 2011Q3

REPORT INFORMATION
  Report Type: 
  Country: None (occurrence: None)
  Receive Date: 20110816
  Receipt Date: 20110801
  Transmission Date: 20111222
  Serious: Yes (Other)
  Sender: FDA-Public Use
  Company Number: CH-WATSON-2011-12784

PATIENT
  Age: 68 Year
  Sex: Male

DRUGS (1)
  1. NORGESTIMATE AND ETHINYL ESTRADIOL [Suspect]
     Indication: HEREDITARY HAEMORRHAGIC TELANGIECTASIA
     Dosage: 50 UG/ 10 MG
     Dates: start: 20060701

REACTIONS (2)
  - HYPOGONADISM [None]
  - LIBIDO DECREASED [None]
